FAERS Safety Report 9031265 (Version 2)
Quarter: 2013Q3

REPORT INFORMATION
  Report Type: Spontaneous
  Country: ES (occurrence: ES)
  Receive Date: 20130123
  Receipt Date: 20130910
  Transmission Date: 20140515
  Serious: Yes (Other)
  Sender: FDA-Public Use
  Company Number: ES-MYLANLABS-2013S1000976

PATIENT
  Age: 20 Month
  Sex: Female

DRUGS (6)
  1. PHENYTOIN [Suspect]
     Indication: STATUS EPILEPTICUS
     Dosage: 15MG/KG AT 1MG/KG/MIN
     Route: 042
  2. PHENYTOIN [Suspect]
     Indication: STATUS EPILEPTICUS
     Dosage: 5MG/KG/DAY
     Route: 065
  3. DIAZEPAM [Concomitant]
     Indication: STATUS EPILEPTICUS
     Dosage: 0.5MG/KG
     Route: 054
  4. DIAZEPAM [Concomitant]
     Indication: STATUS EPILEPTICUS
     Dosage: 0.3MG/KG
     Route: 042
  5. VALPROATE [Concomitant]
     Indication: EPILEPSY
     Dosage: UNCLEAR IF RECEIVING AT ADR ONSET
     Route: 048
  6. OXCARBAZEPINE [Concomitant]
     Indication: EPILEPSY
     Route: 048

REACTIONS (5)
  - Nystagmus [Recovered/Resolved]
  - Sedation [Recovered/Resolved]
  - Dizziness [Recovered/Resolved]
  - Ataxia [Recovered/Resolved]
  - Toxicity to various agents [Recovered/Resolved]
